FAERS Safety Report 11688603 (Version 1)
Quarter: 2015Q4

REPORT INFORMATION
  Report Type: Spontaneous
  Country: IT (occurrence: IT)
  Receive Date: 20151102
  Receipt Date: 20151102
  Transmission Date: 20160304
  Serious: Yes (Other)
  Sender: FDA-Public Use
  Company Number: IT-TEVA-605077ACC

PATIENT
  Sex: Male

DRUGS (1)
  1. OLANZAPINA TEVA - 10 MG COMPRESSE ORODISPERSIBILI - TEVA B.V [Suspect]
     Active Substance: OLANZAPINE
     Indication: PRODUCT USED FOR UNKNOWN INDICATION
     Dosage: 20 MILLIGRAM DAILY;
     Route: 048
     Dates: start: 20121010, end: 20150901

REACTIONS (5)
  - Delirium [Unknown]
  - Hallucination [Unknown]
  - No therapeutic response [Recovering/Resolving]
  - Product substitution issue [Unknown]
  - Skin reaction [Recovering/Resolving]
